FAERS Safety Report 6713652-8 (Version None)
Quarter: 2010Q2

REPORT INFORMATION
  Report Type: 
  Country: None (occurrence: None)
  Receive Date: 20100506
  Receipt Date: 20100427
  Transmission Date: 20101027
  Serious: Yes (Hospitalization)
  Sender: FDA-Public Use
  Company Number: B0650545A

PATIENT
  Age: 38 Year
  Sex: Female
  Weight: 87 kg

DRUGS (3)
  1. LAMICTAL [Suspect]
     Dosage: 150MG PER DAY
     Route: 048
     Dates: start: 20100105, end: 20100315
  2. PANTAZOL [Suspect]
     Indication: GASTRITIS
     Dosage: 40MG PER DAY
     Route: 048
     Dates: start: 20100114
  3. LORAZEPAM [Concomitant]
     Indication: DRUG USE FOR UNKNOWN INDICATION
     Route: 048
     Dates: start: 20100115

REACTIONS (8)
  - DERMATITIS ALLERGIC [None]
  - DRUG INTERACTION [None]
  - HYPOAESTHESIA [None]
  - ORAL MUCOSAL ERUPTION [None]
  - OROPHARYNGEAL SWELLING [None]
  - SWOLLEN TONGUE [None]
  - TONGUE DISORDER [None]
  - TONGUE ERUPTION [None]
